FAERS Safety Report 20014152 (Version 3)
Quarter: 2022Q4

REPORT INFORMATION
  Report Type: Spontaneous
  Country: DK (occurrence: DK)
  Receive Date: 20211029
  Receipt Date: 20221130
  Transmission Date: 20230112
  Serious: Yes (Death)
  Sender: FDA-Public Use
  Company Number: DK-CELLTRION INC.-2021DK014627

PATIENT

DRUGS (23)
  1. RITUXIMAB [Suspect]
     Active Substance: RITUXIMAB
     Indication: Myopathy
     Dosage: UNK
     Route: 065
     Dates: start: 202005
  2. RITUXIMAB [Suspect]
     Active Substance: RITUXIMAB
     Dosage: UNK
     Route: 065
     Dates: start: 202006
  3. PREDNISOLONE [Suspect]
     Active Substance: PREDNISOLONE
     Indication: Muscle necrosis
     Dosage: UNK
     Route: 065
     Dates: start: 201803
  4. PREDNISOLONE [Suspect]
     Active Substance: PREDNISOLONE
     Dosage: METHYLPREDNISOLONE
     Route: 065
     Dates: start: 202005
  5. PREDNISOLONE [Suspect]
     Active Substance: PREDNISOLONE
     Dosage: UNK
     Route: 065
     Dates: start: 202001
  6. PREDNISOLONE [Suspect]
     Active Substance: PREDNISOLONE
     Dosage: UNK
     Route: 065
     Dates: start: 201809
  7. PREDNISOLONE [Suspect]
     Active Substance: PREDNISOLONE
     Dosage: UNK
     Route: 065
     Dates: start: 201811
  8. PREDNISOLONE [Suspect]
     Active Substance: PREDNISOLONE
     Dosage: METHYLPREDNISOLONE
     Route: 065
     Dates: start: 201809
  9. PREDNISOLONE [Suspect]
     Active Substance: PREDNISOLONE
     Dosage: 75 MG/DAY
     Route: 065
     Dates: start: 201801
  10. PREDNISOLONE [Suspect]
     Active Substance: PREDNISOLONE
     Dosage: UNK
     Route: 065
     Dates: start: 202006
  11. PREDNISOLONE [Suspect]
     Active Substance: PREDNISOLONE
     Dosage: UNK
     Route: 065
     Dates: start: 201805
  12. PREDNISOLONE [Suspect]
     Active Substance: PREDNISOLONE
     Dosage: UNK
     Route: 065
     Dates: start: 202001
  13. PREDNISOLONE [Suspect]
     Active Substance: PREDNISOLONE
     Dosage: UNK
     Route: 065
     Dates: start: 201807
  14. MYCOPHENOLATE MOFETIL [Suspect]
     Active Substance: MYCOPHENOLATE MOFETIL
     Indication: Inflammation
     Dosage: UNK
     Route: 065
     Dates: start: 202001
  15. MYCOPHENOLATE MOFETIL [Suspect]
     Active Substance: MYCOPHENOLATE MOFETIL
     Dosage: UNK
     Route: 065
     Dates: start: 202006
  16. MYCOPHENOLATE MOFETIL [Suspect]
     Active Substance: MYCOPHENOLATE MOFETIL
     Dosage: UNK
     Route: 065
     Dates: start: 202004
  17. MYCOPHENOLATE MOFETIL [Suspect]
     Active Substance: MYCOPHENOLATE MOFETIL
     Dosage: UNK
     Route: 065
     Dates: start: 202003
  18. MYCOPHENOLATE MOFETIL [Suspect]
     Active Substance: MYCOPHENOLATE MOFETIL
     Dosage: UNK
     Route: 065
     Dates: start: 202005
  19. MYCOPHENOLATE MOFETIL [Suspect]
     Active Substance: MYCOPHENOLATE MOFETIL
     Dosage: UNK
     Route: 065
     Dates: start: 201911
  20. MYCOPHENOLATE MOFETIL [Suspect]
     Active Substance: MYCOPHENOLATE MOFETIL
     Dosage: UNK
     Route: 065
     Dates: start: 201910
  21. CYCLOSPORINE [Suspect]
     Active Substance: CYCLOSPORINE
     Indication: Inflammation
     Dosage: UNK
     Route: 065
     Dates: start: 201910
  22. CYCLOSPORINE [Suspect]
     Active Substance: CYCLOSPORINE
     Dosage: UNK
     Route: 065
     Dates: start: 201911
  23. CYCLOSPORINE [Suspect]
     Active Substance: CYCLOSPORINE
     Dosage: UNK
     Route: 065
     Dates: start: 202001

REACTIONS (3)
  - Septic shock [Fatal]
  - Cardiogenic shock [Fatal]
  - Off label use [Unknown]
